FAERS Safety Report 25906815 (Version 1)
Quarter: 2025Q4

REPORT INFORMATION
  Report Type: Spontaneous
  Country: US (occurrence: US)
  Receive Date: 20251010
  Receipt Date: 20251010
  Transmission Date: 20260119
  Serious: No
  Sender: SPROUT PHARMACEUTICALS
  Company Number: US-Sprout Pharmaceuticals, Inc.-2025SP000019

PATIENT

DRUGS (9)
  1. ADDYI [Suspect]
     Active Substance: FLIBANSERIN
     Indication: Libido decreased
     Dosage: RX# 7173706, 100 MILLIGRAM
     Route: 048
     Dates: start: 20250121, end: 202501
  2. ADDYI [Suspect]
     Active Substance: FLIBANSERIN
     Dosage: RX# 7173706, 50 MILLIGRAM
     Route: 048
     Dates: start: 20250126, end: 202501
  3. PROBIOTICS NOS [Concomitant]
     Active Substance: PROBIOTICS NOS
     Indication: Product used for unknown indication
  4. Vitamin d3/k2 [Concomitant]
     Indication: Product used for unknown indication
     Dosage: UNK UNK
  5. Hailey Fe [Concomitant]
     Indication: Product used for unknown indication
     Dosage: UNK UNK
  6. VITAMIN B COMPLEX [Concomitant]
     Active Substance: CYANOCOBALAMIN\DEXPANTHENOL\NIACINAMIDE\PYRIDOXINE HYDROCHLORIDE\RIBOFLAVIN 5^-PHOSPHATE SODIUM\THIA
     Indication: Product used for unknown indication
  7. Buffered vitamin C [Concomitant]
     Indication: Product used for unknown indication
     Dosage: UNK UNK
  8. FOLIC ACID [Concomitant]
     Active Substance: FOLIC ACID
     Indication: Product used for unknown indication
     Dosage: UNK UNK
  9. Boron complex [Concomitant]
     Indication: Product used for unknown indication

REACTIONS (4)
  - Headache [Recovered/Resolved]
  - Sleep disorder [Recovered/Resolved]
  - Dry mouth [Recovered/Resolved]
  - Intentional product use issue [Recovered/Resolved]

NARRATIVE: CASE EVENT DATE: 20250121
